FAERS Safety Report 8251644-0 (Version None)
Quarter: 2012Q2

REPORT INFORMATION
  Report Type: 
  Country: None (occurrence: None)
  Receive Date: 20120402
  Receipt Date: 20111220
  Transmission Date: 20120825
  Serious: No
  Sender: FDA-Public Use
  Company Number: US-ABBOTT-11P-163-0885604-00

PATIENT
  Sex: Male
  Weight: 123.94 kg

DRUGS (8)
  1. RAMIPRIL [Concomitant]
     Indication: HYPERTENSION
  2. GLUCOSAMINE SUPPLEMENT [Concomitant]
     Indication: PRODUCT USED FOR UNKNOWN INDICATION
  3. ANDROGEL [Suspect]
     Indication: BLOOD TESTOSTERONE DECREASED
     Dosage: 2 PER PUMPS PER DAY
     Dates: start: 20111101
  4. RANITIDINE [Concomitant]
     Indication: GASTROOESOPHAGEAL REFLUX DISEASE
  5. PRADAXA [Concomitant]
     Indication: ANTICOAGULANT THERAPY
  6. OMEPRAZOLE [Concomitant]
     Indication: GASTROOESOPHAGEAL REFLUX DISEASE
  7. CRESTOR [Concomitant]
     Indication: BLOOD CHOLESTEROL INCREASED
  8. RYTHMOL [Concomitant]
     Indication: CARDIAC DISORDER

REACTIONS (2)
  - WEIGHT INCREASED [None]
  - DRY SKIN [None]
